FAERS Safety Report 7177251-9 (Version None)
Quarter: 2010Q4

REPORT INFORMATION
  Report Type: 
  Country: None (occurrence: None)
  Receive Date: 20101220
  Receipt Date: 20101216
  Transmission Date: 20110411
  Serious: Yes (Hospitalization)
  Sender: FDA-Public Use
  Company Number: IT-ROCHE-742770

PATIENT
  Sex: Male

DRUGS (2)
  1. RIVOTRIL [Suspect]
     Dosage: FREQ:TOTAL
     Route: 048
     Dates: start: 20100902, end: 20100902
  2. SERENASE [Suspect]
     Dosage: FREQ:TOTAL
     Route: 048
     Dates: start: 20100902, end: 20100902

REACTIONS (2)
  - INTENTIONAL OVERDOSE [None]
  - SUICIDE ATTEMPT [None]
